FAERS Safety Report 5978859-6 (Version None)
Quarter: 2008Q4

REPORT INFORMATION
  Report Type: 
  Country: None (occurrence: None)
  Receive Date: 20081126
  Receipt Date: 20080211
  Transmission Date: 20090506
  Serious: Yes (Other)
  Sender: FDA-Public Use
  Company Number: 2008BH001244

PATIENT
  Age: 45 Year
  Sex: Female

DRUGS (13)
  1. DIANEAL [Suspect]
     Indication: PERITONEAL DIALYSIS
     Dosage: IP
     Route: 033
  2. DIANEAL [Suspect]
     Indication: PERITONEAL DIALYSIS
     Dosage: IP
     Route: 033
  3. COMPAZINE [Concomitant]
  4. DIGOXIN [Concomitant]
  5. COZAAR [Concomitant]
  6. LASIX [Concomitant]
  7. HECTOROL [Concomitant]
  8. LOMOTIL [Concomitant]
  9. LOPID [Concomitant]
  10. NIFEDIPINE [Concomitant]
  11. INSULIN [Concomitant]
  12. PHOSLO [Concomitant]
  13. VICODIN [Concomitant]

REACTIONS (2)
  - PERITONITIS BACTERIAL [None]
  - URINARY TRACT INFECTION [None]
